FAERS Safety Report 12497468 (Version 1)
Quarter: 2016Q2

REPORT INFORMATION
  Report Type: Report from Study
  Country: US (occurrence: US)
  Receive Date: 20160624
  Receipt Date: 20160624
  Transmission Date: 20160815
  Serious: Yes (Death)
  Sender: FDA-Public Use
  Company Number: US-ASTRAZENECA-2016SE68573

PATIENT
  Sex: Female

DRUGS (1)
  1. SEROQUEL XR [Suspect]
     Active Substance: QUETIAPINE FUMARATE
     Dosage: 200.0MG UNKNOWN
     Route: 048

REACTIONS (1)
  - Death [Fatal]
